FAERS Safety Report 5545439-6 (Version None)
Quarter: 2007Q4

REPORT INFORMATION
  Report Type: 
  Country: None (occurrence: None)
  Receive Date: 20071211
  Receipt Date: 20071130
  Transmission Date: 20080405
  Serious: Yes (Other)
  Sender: FDA-Public Use
  Company Number: US-KINGPHARMUSA00001-K200701543

PATIENT

DRUGS (5)
  1. ALTACE [Suspect]
     Indication: CARDIOMYOPATHY
     Dosage: 2.5 MG, QD
     Route: 048
     Dates: start: 20021101
  2. ALTACE [Suspect]
     Indication: MYOCARDITIS
  3. ALTACE [Suspect]
     Indication: TACHYARRHYTHMIA
  4. CONCOR                             /00802602/ [Concomitant]
     Indication: MYOCARDITIS
     Dosage: 2.5 MG, QD
     Route: 048
     Dates: start: 20021101
  5. CONCOR                             /00802602/ [Concomitant]
     Indication: TACHYARRHYTHMIA

REACTIONS (1)
  - ABORTION SPONTANEOUS [None]
